FAERS Safety Report 24924551 (Version 1)
Quarter: 2025Q1

REPORT INFORMATION
  Report Type: Spontaneous
  Country: FR (occurrence: FR)
  Receive Date: 20250204
  Receipt Date: 20250204
  Transmission Date: 20250409
  Serious: Yes (Hospitalization, Other)
  Sender: ABBVIE
  Company Number: None

PATIENT
  Age: 53 Year
  Sex: Female

DRUGS (30)
  1. BOTULINUM TOXIN TYPE A [Suspect]
     Active Substance: BOTULINUM TOXIN TYPE A
     Indication: Neuropathy peripheral
     Route: 058
  2. CYPROTERONE ACETATE [Suspect]
     Active Substance: CYPROTERONE ACETATE
     Indication: Product used for unknown indication
     Dosage: DOSE DESC: UNK,
     Route: 065
     Dates: start: 20051115
  3. CYPROTERONE ACETATE [Suspect]
     Active Substance: CYPROTERONE ACETATE
     Indication: Product used for unknown indication
     Route: 065
     Dates: start: 20090911
  4. CYPROTERONE ACETATE [Suspect]
     Active Substance: CYPROTERONE ACETATE
     Indication: Product used for unknown indication
     Route: 065
     Dates: start: 200812
  5. CYPROTERONE ACETATE [Suspect]
     Active Substance: CYPROTERONE ACETATE
     Indication: Product used for unknown indication
     Route: 065
     Dates: start: 20090221
  6. CYPROTERONE ACETATE [Suspect]
     Active Substance: CYPROTERONE ACETATE
     Indication: Product used for unknown indication
     Route: 065
     Dates: start: 20090418
  7. CYPROTERONE ACETATE [Suspect]
     Active Substance: CYPROTERONE ACETATE
     Indication: Product used for unknown indication
     Route: 065
     Dates: start: 20090511
  8. CYPROTERONE ACETATE [Suspect]
     Active Substance: CYPROTERONE ACETATE
     Indication: Product used for unknown indication
     Route: 065
     Dates: start: 20090613
  9. CYPROTERONE ACETATE [Suspect]
     Active Substance: CYPROTERONE ACETATE
     Indication: Product used for unknown indication
     Route: 065
     Dates: start: 20090808
  10. CYPROTERONE ACETATE [Suspect]
     Active Substance: CYPROTERONE ACETATE
     Indication: Product used for unknown indication
     Route: 065
     Dates: start: 200312
  11. CYPROTERONE ACETATE [Suspect]
     Active Substance: CYPROTERONE ACETATE
     Indication: Product used for unknown indication
     Route: 065
     Dates: start: 20060103
  12. CYPROTERONE ACETATE [Suspect]
     Active Substance: CYPROTERONE ACETATE
     Indication: Product used for unknown indication
     Dates: start: 20100123
  13. CYPROTERONE ACETATE [Suspect]
     Active Substance: CYPROTERONE ACETATE
     Indication: Product used for unknown indication
     Dates: start: 20100123
  14. CYPROTERONE ACETATE [Suspect]
     Active Substance: CYPROTERONE ACETATE
     Indication: Product used for unknown indication
     Dates: start: 20090911
  15. ETHAMSYLATE [Suspect]
     Active Substance: ETHAMSYLATE
     Indication: Product used for unknown indication
     Route: 065
     Dates: start: 200905
  16. ACUPAN [Suspect]
     Active Substance: NEFOPAM HYDROCHLORIDE
     Indication: Product used for unknown indication
     Dosage: DOSE DESC: UNK, EVERY DAY
     Route: 065
  17. CHLORMADINONE ACETATE [Suspect]
     Active Substance: CHLORMADINONE ACETATE
     Indication: Product used for unknown indication
     Route: 065
     Dates: start: 20080414
  18. CHLORMADINONE ACETATE [Suspect]
     Active Substance: CHLORMADINONE ACETATE
     Indication: Product used for unknown indication
     Route: 065
     Dates: start: 20060209
  19. CHLORMADINONE ACETATE [Suspect]
     Active Substance: CHLORMADINONE ACETATE
     Indication: Product used for unknown indication
     Route: 065
     Dates: start: 20031117
  20. CHLORMADINONE ACETATE [Suspect]
     Active Substance: CHLORMADINONE ACETATE
     Indication: Product used for unknown indication
     Route: 065
     Dates: start: 20080107
  21. CHLORMADINONE ACETATE [Suspect]
     Active Substance: CHLORMADINONE ACETATE
     Indication: Product used for unknown indication
     Route: 065
     Dates: start: 20080624
  22. DOLIPRANE [Suspect]
     Active Substance: ACETAMINOPHEN
     Indication: Product used for unknown indication
     Route: 065
  23. Mycoster [Concomitant]
     Indication: Product used for unknown indication
     Route: 065
     Dates: start: 201405
  24. Mycoster [Concomitant]
     Indication: Product used for unknown indication
     Route: 065
     Dates: start: 201609
  25. COLPOSEPTINE [Concomitant]
     Indication: Product used for unknown indication
     Route: 065
     Dates: start: 201307
  26. Algesic [Concomitant]
     Indication: Product used for unknown indication
     Route: 065
  27. SMECTA [Concomitant]
     Active Substance: MONTMORILLONITE
     Indication: Product used for unknown indication
     Route: 065
     Dates: start: 201401
  28. ECONAZOLE NITRATE [Concomitant]
     Active Substance: ECONAZOLE NITRATE
     Indication: Product used for unknown indication
     Route: 065
  29. CYPROTERONE ACETATE [Concomitant]
     Active Substance: CYPROTERONE ACETATE
     Indication: Product used for unknown indication
     Route: 065
  30. FENTICONAZOLE NITRATE [Concomitant]
     Active Substance: FENTICONAZOLE NITRATE
     Indication: Product used for unknown indication
     Route: 065
     Dates: start: 201901

REACTIONS (51)
  - Meningioma [Unknown]
  - Pulmonary embolism [Unknown]
  - Embolism [Unknown]
  - Oculogyric crisis [Unknown]
  - Pain of skin [Unknown]
  - Trismus [Unknown]
  - Procedural pain [Not Recovered/Not Resolved]
  - Skin hypopigmentation [Unknown]
  - Memory impairment [Unknown]
  - Facial pain [Unknown]
  - Balance disorder [Unknown]
  - Sexual dysfunction [Unknown]
  - Job dissatisfaction [Unknown]
  - Pain [Unknown]
  - Scar [Unknown]
  - Periorbital pain [Unknown]
  - Heavy menstrual bleeding [Unknown]
  - Post procedural complication [Unknown]
  - Neuralgia [Unknown]
  - Dyspnoea exertional [Unknown]
  - Dizziness [Unknown]
  - Abnormal behaviour [Unknown]
  - Eye disorder [Unknown]
  - Skin lesion [Unknown]
  - COVID-19 [Unknown]
  - Eye pain [Unknown]
  - Occipital neuralgia [Unknown]
  - Dyslexia [Unknown]
  - Disturbance in attention [Unknown]
  - Allodynia [Unknown]
  - Crying [Unknown]
  - Temporomandibular pain and dysfunction syndrome [Unknown]
  - Mastication disorder [Unknown]
  - Stress [Unknown]
  - Paraesthesia [Unknown]
  - Speech disorder [Unknown]
  - Vertigo [Unknown]
  - Asthenia [Unknown]
  - Headache [Unknown]
  - Ovarioleukodystrophy [Unknown]
  - Menometrorrhagia [Unknown]
  - Breast pain [Unknown]
  - Uterine leiomyoma [Unknown]
  - Intercostal neuralgia [Unknown]
  - Rash erythematous [Unknown]
  - Scab [Unknown]
  - Intracranial pressure increased [Unknown]
  - Toothache [Unknown]
  - Malaise [Unknown]
  - Procedural pain [Unknown]
  - Neuropathy peripheral [Unknown]

NARRATIVE: CASE EVENT DATE: 20151201
